FAERS Safety Report 8351419-8 (Version None)
Quarter: 2012Q2

REPORT INFORMATION
  Report Type: 
  Country: None (occurrence: None)
  Receive Date: 20120510
  Receipt Date: 20120427
  Transmission Date: 20120825
  Serious: Yes (Other)
  Sender: FDA-Public Use
  Company Number: US-RB-039868-12

PATIENT
  Age: 26 Year
  Sex: Male

DRUGS (1)
  1. SUBOXONE [Suspect]
     Indication: PRODUCT USED FOR UNKNOWN INDICATION
     Dosage: DOSING DETAILS UNKNOWN
     Route: 065
     Dates: start: 20120401

REACTIONS (6)
  - FLUID INTAKE REDUCED [None]
  - INSOMNIA [None]
  - OVERDOSE [None]
  - CONVULSION [None]
  - APHAGIA [None]
  - VOMITING [None]
